FAERS Safety Report 18187066 (Version 1)
Quarter: 2020Q3

REPORT INFORMATION
  Report Type: Spontaneous
  Country: US (occurrence: US)
  Receive Date: 20200822
  Receipt Date: 20200822
  Transmission Date: 20201103
  Serious: No
  Sender: FDA-Public Use
  Company Number: None

PATIENT
  Age: 50 Year
  Sex: Male

DRUGS (1)
  1. TECFIDERA [Suspect]
     Active Substance: DIMETHYL FUMARATE
     Indication: MULTIPLE SCLEROSIS
     Dosage: ?          OTHER DOSE:120/240MG;?
     Route: 048
     Dates: start: 20200808

REACTIONS (4)
  - Abdominal pain [None]
  - Constipation [None]
  - Lethargy [None]
  - Abdominal discomfort [None]

NARRATIVE: CASE EVENT DATE: 202008
